FAERS Safety Report 7011448-3 (Version None)
Quarter: 2010Q3

REPORT INFORMATION
  Report Type: 
  Country: None (occurrence: None)
  Receive Date: 20100922
  Receipt Date: 20100922
  Transmission Date: 20110219
  Serious: Yes (Life-Threatening)
  Sender: FDA-Public Use
  Company Number: None

PATIENT
  Age: 49 Year
  Sex: Female
  Weight: 63.6 kg

DRUGS (2)
  1. CVS ANTI-MICROBIAL SILVER GEL SILVER CHLORIDE [Suspect]
     Indication: BURNS SECOND DEGREE
     Dosage: THIN LAYER ONCE TOPICAL
     Route: 061
     Dates: start: 20100915
  2. THERMAZENE [Suspect]
     Indication: BURNS SECOND DEGREE
     Dosage: THIN LAYER ONCE TOPICAL
     Route: 061

REACTIONS (2)
  - ANGIOEDEMA [None]
  - HYPERSENSITIVITY [None]
